FAERS Safety Report 25925092 (Version 1)
Quarter: 2025Q4

REPORT INFORMATION
  Report Type: Spontaneous
  Country: US (occurrence: None)
  Receive Date: 20251013
  Receipt Date: 20251013
  Transmission Date: 20260117
  Serious: Yes (Hospitalization)
  Sender: FDA-CTU
  Company Number: None

PATIENT
  Sex: Male

DRUGS (1)
  1. HUMIRA [Suspect]
     Active Substance: ADALIMUMAB
     Indication: Rheumatoid arthritis
     Dosage: 40 MG EVERY 14 DAYS SUBCUTANEOUS
     Route: 058
     Dates: start: 20240305

REACTIONS (5)
  - Pneumonia [None]
  - Sepsis [None]
  - Joint swelling [None]
  - Arthralgia [None]
  - Therapy cessation [None]
